FAERS Safety Report 11968577 (Version 1)
Quarter: 2016Q1

REPORT INFORMATION
  Report Type: Spontaneous
  Country: US (occurrence: US)
  Receive Date: 20160128
  Receipt Date: 20160128
  Transmission Date: 20160526
  Serious: No
  Sender: FDA-Public Use
  Company Number: US-JNJFOC-20160102956

PATIENT
  Age: 45 Year
  Sex: Female
  Weight: 63.5 kg

DRUGS (4)
  1. WOMENS ROGAINE UNSCENTED [Suspect]
     Active Substance: MINOXIDIL
     Route: 061
  2. TAMOXIFEN [Concomitant]
     Active Substance: TAMOXIFEN
     Indication: BREAST CANCER
     Route: 065
  3. WOMENS ROGAINE UNSCENTED [Suspect]
     Active Substance: MINOXIDIL
     Indication: ALOPECIA
     Dosage: CAPFUL
     Route: 061
  4. ALL OTHER THERAPEUTIC PRODUCTS [Concomitant]
     Active Substance: UNSPECIFIED INGREDIENT
     Indication: ALOPECIA
     Route: 065

REACTIONS (5)
  - Extra dose administered [Recovered/Resolved]
  - Headache [Recovered/Resolved]
  - Erythema [Recovered/Resolved]
  - Contraindicated drug administered [Recovered/Resolved]
  - Off label use [Recovered/Resolved]
